FAERS Safety Report 18860207 (Version 2)
Quarter: 2022Q2

REPORT INFORMATION
  Report Type: Report from Study
  Country: DK (occurrence: DK)
  Receive Date: 20210208
  Receipt Date: 20220624
  Transmission Date: 20220721
  Serious: Yes (Hospitalization, Congenital Anomaly, Other)
  Sender: FDA-Public Use
  Company Number: DK-VIIV HEALTHCARE LIMITED-B0264541A

PATIENT

DRUGS (4)
  1. LAMIVUDINE AND ZIDOVUDINE [Suspect]
     Active Substance: LAMIVUDINE\ZIDOVUDINE
     Indication: HIV infection
     Dosage: 1 DF, BID
     Route: 064
     Dates: start: 20010329
  2. ABACAVIR SULFATE [Suspect]
     Active Substance: ABACAVIR SULFATE
     Indication: HIV infection
     Dosage: 600 MG, QD
     Route: 064
     Dates: start: 20010329
  3. ABACAVIR SULFATE\LAMIVUDINE\ZIDOVUDINE [Suspect]
     Active Substance: ABACAVIR SULFATE\LAMIVUDINE\ZIDOVUDINE
     Indication: HIV infection
     Dosage: 1 DF, BID
     Route: 064
     Dates: start: 20010531
  4. ZIDOVUDINE [Suspect]
     Active Substance: ZIDOVUDINE
     Indication: HIV infection
     Dosage: UNK
     Route: 064
     Dates: start: 20011228

REACTIONS (7)
  - Talipes [Unknown]
  - Congenital generalised lipodystrophy [Unknown]
  - Congenital multiplex arthrogryposis [Unknown]
  - Congenital hand malformation [Unknown]
  - Neck deformity [Unknown]
  - Pterygium colli [Unknown]
  - Foetal exposure during pregnancy [Unknown]
